FAERS Safety Report 4567925-8 (Version None)
Quarter: 2005Q1

REPORT INFORMATION
  Report Type: 
  Country: None (occurrence: None)
  Receive Date: 20050202
  Receipt Date: 20040212
  Transmission Date: 20050727
  Serious: No
  Sender: FDA-Public Use
  Company Number: US-GLAXOSMITHKLINE-A0498019A

PATIENT
  Sex: Male

DRUGS (3)
  1. NAVELBINE [Suspect]
     Indication: PROSTATE CANCER
     Dosage: 30MGM2 UNKNOWN
     Route: 042
  2. AMARYL [Concomitant]
     Route: 065
  3. ACTOS [Concomitant]
     Route: 065

REACTIONS (1)
  - HYPOGLYCAEMIA [None]
